FAERS Safety Report 20016538 (Version 1)
Quarter: 2021Q4

REPORT INFORMATION
  Report Type: Spontaneous
  Country: US (occurrence: None)
  Receive Date: 20211104
  Receipt Date: 20211104
  Transmission Date: 20220304
  Serious: Yes (Hospitalization)
  Sender: FDA-Public Use
  Company Number: None

PATIENT
  Age: 67 Year
  Sex: Male
  Weight: 78.75 kg

DRUGS (4)
  1. TECENTRIQ [Suspect]
     Active Substance: ATEZOLIZUMAB
     Indication: Small cell lung cancer extensive stage
     Dates: start: 20210527, end: 20210529
  2. ELIQUIS [Suspect]
     Active Substance: APIXABAN
  3. LOSARTAN [Suspect]
     Active Substance: LOSARTAN
  4. MELATONIN [Concomitant]
     Active Substance: MELATONIN

REACTIONS (5)
  - Diarrhoea [None]
  - Anal abscess [None]
  - Anal fistula [None]
  - Infection [None]
  - Wound [None]

NARRATIVE: CASE EVENT DATE: 20210608
